FAERS Safety Report 9405920 (Version 1)
Quarter: 2013Q3

REPORT INFORMATION
  Report Type: Spontaneous
  Country: US (occurrence: US)
  Receive Date: 20130717
  Receipt Date: 20130717
  Transmission Date: 20140515
  Serious: Yes (Other)
  Sender: FDA-Public Use
  Company Number: US-GLAXOSMITHKLINE-A1033637A

PATIENT
  Sex: Female

DRUGS (1)
  1. VOTRIENT [Suspect]
     Indication: SOFT TISSUE CANCER
     Dosage: 200MG UNKNOWN
     Route: 065

REACTIONS (2)
  - Urinary tract infection [Unknown]
  - Pyrexia [Recovered/Resolved]
